FAERS Safety Report 11353790 (Version 1)
Quarter: 2015Q3

REPORT INFORMATION
  Report Type: Spontaneous
  Country: US (occurrence: US)
  Receive Date: 20150807
  Receipt Date: 20150807
  Transmission Date: 20151125
  Serious: No
  Sender: FDA-Public Use
  Company Number: US-JNJFOC-20141217945

PATIENT
  Age: 76 Year
  Sex: Female
  Weight: 55.34 kg

DRUGS (2)
  1. WOMENS ROGAINE EXTRA STRENGTH [Suspect]
     Active Substance: MINOXIDIL
     Indication: ALOPECIA
     Dosage: HALF A CAPFUL
     Route: 061
     Dates: start: 20141212, end: 20141222
  2. WOMENS ROGAINE EXTRA STRENGTH [Suspect]
     Active Substance: MINOXIDIL
     Route: 061

REACTIONS (4)
  - Hair texture abnormal [Recovered/Resolved]
  - Alopecia [Unknown]
  - Inappropriate schedule of drug administration [Unknown]
  - Trichorrhexis [Recovered/Resolved]

NARRATIVE: CASE EVENT DATE: 20141212
